FAERS Safety Report 23668578 (Version 1)
Quarter: 2024Q1

REPORT INFORMATION
  Report Type: Spontaneous
  Country: US (occurrence: None)
  Receive Date: 20240325
  Receipt Date: 20240325
  Transmission Date: 20240409
  Serious: No
  Sender: FDA-Public Use
  Company Number: 2024A066146

PATIENT
  Sex: Male

DRUGS (1)
  1. CALQUENCE [Suspect]
     Active Substance: ACALABRUTINIB
     Route: 048

REACTIONS (6)
  - Blood test abnormal [Unknown]
  - Insomnia [Unknown]
  - Movement disorder [Unknown]
  - Visual impairment [Unknown]
  - Decreased activity [Unknown]
  - Off label use [Unknown]
